FAERS Safety Report 8819052 (Version 1)
Quarter: 2012Q4

REPORT INFORMATION
  Report Type: 
  Country: MX (occurrence: MX)
  Receive Date: 20121001
  Receipt Date: 20121001
  Transmission Date: 20130627
  Serious: Yes (Death)
  Sender: FDA-Public Use
  Company Number: MX-BAYER-2012-101680

PATIENT
  Age: 12 Day
  Sex: Female
  Weight: 1.3 kg

DRUGS (4)
  1. CIPROXINA [Suspect]
  2. MEROPENEM [Suspect]
  3. VANCOMYCIN [Suspect]
  4. AMIKACIN [Suspect]

REACTIONS (2)
  - Systemic candida [Fatal]
  - Medical device complication [None]
